FAERS Safety Report 12737488 (Version 2)
Quarter: 2016Q3

REPORT INFORMATION
  Report Type: Spontaneous
  Country: US (occurrence: US)
  Receive Date: 20160913
  Receipt Date: 20160921
  Transmission Date: 20161109
  Serious: No
  Sender: FDA-Public Use
  Company Number: US-ASTRAZENECA-2016SE94526

PATIENT
  Age: 855 Month
  Sex: Male
  Weight: 87.1 kg

DRUGS (2)
  1. 9 CONCOMITANT MEDICATIONS [Concomitant]
  2. TUDORZA PRESSAIR [Suspect]
     Active Substance: ACLIDINIUM BROMIDE
     Indication: CHRONIC OBSTRUCTIVE PULMONARY DISEASE
     Dosage: ONE PUFF TWICE A DAY
     Route: 055
     Dates: start: 201607, end: 201608

REACTIONS (5)
  - Device failure [Unknown]
  - Dyspnoea [Not Recovered/Not Resolved]
  - Drug dose omission [Not Recovered/Not Resolved]
  - Intentional product misuse [Unknown]
  - Device issue [Unknown]

NARRATIVE: CASE EVENT DATE: 201608
